FAERS Safety Report 9426663 (Version 1)
Quarter: 2013Q3

REPORT INFORMATION
  Report Type: Spontaneous
  Country: US (occurrence: None)
  Receive Date: 20130729
  Receipt Date: 20130729
  Transmission Date: 20140515
  Serious: Yes (Other)
  Sender: FDA-Public Use
  Company Number: None

PATIENT
  Age: 52 Year
  Sex: Female
  Weight: 59.88 kg

DRUGS (1)
  1. FLOUROURACIL [Suspect]
     Dosage: 5%?1/4 TEASPOON?AT BEDTIME?ON THE SKIN
     Dates: start: 20130610, end: 20130704

REACTIONS (1)
  - No therapeutic response [None]
